FAERS Safety Report 16759550 (Version 2)
Quarter: 2019Q3

REPORT INFORMATION
  Report Type: Spontaneous
  Country: US (occurrence: US)
  Receive Date: 20190830
  Receipt Date: 20190830
  Transmission Date: 20191005
  Serious: No
  Sender: FDA-Public Use
  Company Number: US-RECKITT BENCKISER HEALTHCARE INT LIMITED-RB-94598-2018

PATIENT
  Sex: Male

DRUGS (1)
  1. MUCINEX D MAXIMUM STRENGTH [Suspect]
     Active Substance: GUAIFENESIN\PSEUDOEPHEDRINE HYDROCHLORIDE
     Indication: PRODUCT USED FOR UNKNOWN INDICATION
     Dosage: UNK
     Route: 048

REACTIONS (7)
  - Cough [Unknown]
  - Product taste abnormal [Recovered/Resolved]
  - Paraesthesia oral [Unknown]
  - Choking [Unknown]
  - Abnormal behaviour [Unknown]
  - Foreign body in respiratory tract [Unknown]
  - Salivary hypersecretion [Unknown]
